FAERS Safety Report 7006037-0 (Version None)
Quarter: 2010Q3

REPORT INFORMATION
  Report Type: 
  Country: None (occurrence: None)
  Receive Date: 20100917
  Receipt Date: 20100902
  Transmission Date: 20110219
  Serious: Yes (Other)
  Sender: FDA-Public Use
  Company Number: AUR-APL-2010-01223

PATIENT
  Age: 65 Year
  Sex: Female

DRUGS (2)
  1. SIMVASTATIN [Suspect]
     Indication: HYPERCHOLESTEROLAEMIA
     Dosage: 20MG, DAILY, ORAL
     Route: 048
     Dates: start: 20030101, end: 20090101
  2. ZARATOR FILM-COATED TABLET (PFIZER) [Suspect]
     Dosage: ORAL
     Route: 048
     Dates: end: 20090101

REACTIONS (6)
  - BLOOD CHOLESTEROL INCREASED [None]
  - CYSTITIS [None]
  - DRUG INEFFECTIVE [None]
  - DYSURIA [None]
  - HAEMATURIA [None]
  - LOW DENSITY LIPOPROTEIN INCREASED [None]
